FAERS Safety Report 8502290 (Version 4)
Quarter: 2019Q1

REPORT INFORMATION
  Report Type: Spontaneous
  Country: FR (occurrence: FR)
  Receive Date: 20120410
  Receipt Date: 20190222
  Transmission Date: 20190418
  Serious: Yes (Life-Threatening, Hospitalization)
  Sender: FDA-Public Use
  Company Number: FR-ROCHE-1057578

PATIENT
  Age: 53 Year
  Sex: Male

DRUGS (8)
  1. XOLAIR [Suspect]
     Active Substance: OMALIZUMAB
     Indication: ASTHMA
     Route: 058
     Dates: start: 20080926
  2. SINGULAIR [Concomitant]
     Active Substance: MONTELUKAST SODIUM
     Route: 065
  3. SYMBICORT [Concomitant]
     Active Substance: BUDESONIDE\FORMOTEROL FUMARATE DIHYDRATE
     Route: 065
     Dates: start: 2000
  4. OXEOL [Concomitant]
     Active Substance: BAMBUTEROL HYDROCHLORIDE
  5. ATROVENT [Concomitant]
     Active Substance: IPRATROPIUM BROMIDE
  6. VENTOLINE [Concomitant]
     Active Substance: ALBUTEROL
  7. XOLAIR [Suspect]
     Active Substance: OMALIZUMAB
     Route: 058
     Dates: start: 201202, end: 20120307
  8. BRICANYL [Concomitant]
     Active Substance: TERBUTALINE SULFATE

REACTIONS (3)
  - Cardiac failure [Not Recovered/Not Resolved]
  - Pulmonary embolism [Recovered/Resolved with Sequelae]
  - Splenic infarction [Recovered/Resolved with Sequelae]

NARRATIVE: CASE EVENT DATE: 20120307
